FAERS Safety Report 8077626-X (Version None)
Quarter: 2012Q1

REPORT INFORMATION
  Report Type: 
  Country: None (occurrence: None)
  Receive Date: 20120123
  Receipt Date: 20120114
  Transmission Date: 20120608
  Serious: Yes (Hospitalization, Other)
  Sender: FDA-Public Use
  Company Number: JPI-P-015872

PATIENT
  Age: 73 Year
  Sex: Male
  Weight: 68.0396 kg

DRUGS (14)
  1. ASPIRIN [Concomitant]
  2. DICLOFENAC [Concomitant]
  3. METHYLPHENIDATE [Concomitant]
  4. SERTRALINE HYDROCHLORIDE [Concomitant]
  5. DONEPEZIL HCL [Concomitant]
  6. BENAZEPRIL HYDROCHLORIDE [Concomitant]
  7. SIMVASTATIN [Concomitant]
  8. XYREM (500 MILLIGRAM/ MILLLITERS, SOLUTION) (SODIUM OXYBATE) [Suspect]
     Indication: HYPNAGOGIC HALLUCINATION
     Dosage: 6 GM (3 GM,2 IN 1 D),ORAL
     Route: 048
     Dates: start: 20020930
  9. XYREM (500 MILLIGRAM/ MILLLITERS, SOLUTION) (SODIUM OXYBATE) [Suspect]
     Indication: SLEEP DISORDER
     Dosage: 6 GM (3 GM,2 IN 1 D),ORAL
     Route: 048
     Dates: start: 20020930
  10. XYREM (500 MILLIGRAM/ MILLLITERS, SOLUTION) (SODIUM OXYBATE) [Suspect]
     Indication: SLEEP PARALYSIS
     Dosage: 6 GM (3 GM,2 IN 1 D),ORAL
     Route: 048
     Dates: start: 20020930
  11. XYREM (500 MILLIGRAM/ MILLLITERS, SOLUTION) (SODIUM OXYBATE) [Suspect]
     Indication: CATAPLEXY
     Dosage: 6 GM (3 GM,2 IN 1 D),ORAL
     Route: 048
     Dates: start: 20020930
  12. XYREM [Suspect]
  13. LEVOTHYROXINE SODIUM [Concomitant]
  14. TERAZOSIN HCL [Concomitant]

REACTIONS (10)
  - CATAPLEXY [None]
  - DYSSTASIA [None]
  - ARTHRALGIA [None]
  - HIP FRACTURE [None]
  - IRRITABILITY [None]
  - BALANCE DISORDER [None]
  - FEMUR FRACTURE [None]
  - FALL [None]
  - EYE INJURY [None]
  - JOINT DISLOCATION [None]
